FAERS Safety Report 9917059 (Version 1)
Quarter: 2014Q1

REPORT INFORMATION
  Report Type: Spontaneous
  Country: CA (occurrence: CA)
  Receive Date: 20140221
  Receipt Date: 20140221
  Transmission Date: 20141002
  Serious: Yes (Death)
  Sender: FDA-Public Use
  Company Number: CA-ACTELION-A-US2014-94810

PATIENT
  Age: 66 Year
  Sex: Male

DRUGS (1)
  1. TRACLEER [Suspect]
     Indication: SYSTEMIC LUPUS ERYTHEMATOSUS
     Dosage: 125 MG, UNK
     Route: 048
     Dates: start: 201309

REACTIONS (1)
  - Death [Fatal]
